FAERS Safety Report 12876054 (Version 1)
Quarter: 2016Q4

REPORT INFORMATION
  Report Type: Spontaneous
  Country: US (occurrence: US)
  Receive Date: 20161024
  Receipt Date: 20161024
  Transmission Date: 20170207
  Serious: No
  Sender: FDA-Public Use
  Company Number: US-JAZZ-JPI-P-018867

PATIENT
  Age: 37 Year
  Sex: Female

DRUGS (11)
  1. XYREM [Suspect]
     Active Substance: SODIUM OXYBATE
     Dosage: 4.5 G, BID
     Route: 048
     Dates: start: 20111201
  2. TIZANIDINE. [Concomitant]
     Active Substance: TIZANIDINE
     Indication: PRODUCT USED FOR UNKNOWN INDICATION
  3. LUVOX [Concomitant]
     Active Substance: FLUVOXAMINE MALEATE
  4. LORAZEPAM. [Concomitant]
     Active Substance: LORAZEPAM
     Indication: PRODUCT USED FOR UNKNOWN INDICATION
  5. EFFEXOR [Concomitant]
     Active Substance: VENLAFAXINE HYDROCHLORIDE
  6. XYREM [Suspect]
     Active Substance: SODIUM OXYBATE
     Indication: NARCOLEPSY
     Dosage: 2.25 G, FIRST DOSE
     Route: 048
     Dates: start: 20111019, end: 20111130
  7. TENEX [Suspect]
     Active Substance: GUANFACINE HYDROCHLORIDE
     Indication: IMPULSE-CONTROL DISORDER
     Dosage: UNK
     Dates: start: 20111219
  8. ADDERALL [Concomitant]
     Active Substance: AMPHETAMINE ASPARTATE\AMPHETAMINE SULFATE\DEXTROAMPHETAMINE SACCHARATE\DEXTROAMPHETAMINE SULFATE
  9. ATIVAN [Concomitant]
     Active Substance: LORAZEPAM
  10. XYREM [Suspect]
     Active Substance: SODIUM OXYBATE
     Dosage: 3 G, SECOND DOSE
     Route: 048
     Dates: start: 20111019, end: 20111130
  11. PHENTERMINE HCL [Suspect]
     Active Substance: PHENTERMINE HYDROCHLORIDE
     Indication: PRODUCT USED FOR UNKNOWN INDICATION
     Dosage: UNK
     Dates: end: 2016

REACTIONS (15)
  - Drug ineffective [Unknown]
  - Alopecia [Not Recovered/Not Resolved]
  - Eye swelling [Recovering/Resolving]
  - Feeling abnormal [Unknown]
  - Somnolence [Recovering/Resolving]
  - Dermatillomania [Recovering/Resolving]
  - Fall [Unknown]
  - Head injury [Recovering/Resolving]
  - Contusion [Recovering/Resolving]
  - Sedation [Recovering/Resolving]
  - Trichotillomania [Recovering/Resolving]
  - Abnormal dreams [Recovered/Resolved]
  - Rhinorrhoea [Not Recovered/Not Resolved]
  - Treatment noncompliance [Unknown]
  - Unevaluable event [Unknown]

NARRATIVE: CASE EVENT DATE: 2011
